FAERS Safety Report 7642412-9 (Version None)
Quarter: 2011Q3

REPORT INFORMATION
  Report Type: 
  Country: None (occurrence: None)
  Receive Date: 20110728
  Receipt Date: 20100831
  Transmission Date: 20111222
  Serious: No
  Sender: FDA-Public Use
  Company Number: US-MYLANLABS-2010S1016249

PATIENT
  Age: 38 Year
  Sex: Female
  Weight: 83.92 kg

DRUGS (1)
  1. LEVOTHYROXINE SODIUM [Suspect]
     Indication: HYPOTHYROIDISM
     Route: 048
     Dates: start: 20090301

REACTIONS (3)
  - DIZZINESS [None]
  - ANXIETY [None]
  - PALPITATIONS [None]
